FAERS Safety Report 8991770 (Version 3)
Quarter: 2013Q2

REPORT INFORMATION
  Report Type: Report from Study
  Country: GB (occurrence: GB)
  Receive Date: 20121231
  Receipt Date: 20130503
  Transmission Date: 20140414
  Serious: Yes (Other)
  Sender: FDA-Public Use
  Company Number: GB-BAYER-2012-135542

PATIENT
  Age: 53 Year
  Sex: Female

DRUGS (6)
  1. SORAFENIB (RAF KINASE INHIBITOR) [Suspect]
     Indication: RENAL CELL CARCINOMA
     Dosage: 200 MG OD
     Route: 048
     Dates: start: 20101126, end: 20111117
  2. PLACEBO (11712) [Suspect]
     Indication: RENAL CELL CARCINOMA
     Dosage: 200 MG OD
     Dates: start: 20111118, end: 20121207
  3. PLACEBO (11712) [Suspect]
     Indication: RENAL CELL CARCINOMA
  4. PARACETAMOL [Concomitant]
     Dosage: DAILY DOSE 500 MG
     Route: 048
  5. OXYTETRACYCLINE [Concomitant]
     Dosage: UNK
     Route: 048
     Dates: start: 2009
  6. METEVANNE [Concomitant]
     Dosage: DAILY DOSE 135 MG
     Dates: start: 201204

REACTIONS (1)
  - Crohn^s disease [Not Recovered/Not Resolved]
